FAERS Safety Report 16008801 (Version 1)
Quarter: 2019Q1

REPORT INFORMATION
  Report Type: Spontaneous
  Country: CA (occurrence: CA)
  Receive Date: 20190226
  Receipt Date: 20190226
  Transmission Date: 20190418
  Serious: Yes (Hospitalization)
  Sender: FDA-Public Use
  Company Number: CA-ACTELION-A-US2019-186461

PATIENT
  Sex: Female

DRUGS (16)
  1. METFORMIN [Concomitant]
     Active Substance: METFORMIN HYDROCHLORIDE
  2. NPH INSULIN [Concomitant]
     Active Substance: INSULIN BEEF
  3. SYNTHROID [Concomitant]
     Active Substance: LEVOTHYROXINE SODIUM
  4. DICLOFENAC [Concomitant]
     Active Substance: DICLOFENAC
  5. AMITRIPTYLINE [Concomitant]
     Active Substance: AMITRIPTYLINE
  6. IPRATROPIUM [Concomitant]
     Active Substance: IPRATROPIUM
  7. SALBUTAMOL [Concomitant]
     Active Substance: ALBUTEROL
  8. ATENOLOL. [Concomitant]
     Active Substance: ATENOLOL
  9. FUROSEMIDE. [Concomitant]
     Active Substance: FUROSEMIDE
  10. GLICLAZIDE [Concomitant]
     Active Substance: GLICLAZIDE
  11. LORAZEPAM. [Concomitant]
     Active Substance: LORAZEPAM
  12. PAROXETINE. [Concomitant]
     Active Substance: PAROXETINE
  13. REVATIO [Concomitant]
     Active Substance: SILDENAFIL CITRATE
  14. TRACLEER [Suspect]
     Active Substance: BOSENTAN
     Indication: PULMONARY ARTERIAL HYPERTENSION
     Dosage: 62.5 MG, BID
     Route: 048
     Dates: start: 20190123
  15. OMEPRAZOLE. [Concomitant]
     Active Substance: OMEPRAZOLE
  16. ATORVASTATIN [Concomitant]
     Active Substance: ATORVASTATIN

REACTIONS (1)
  - Hospitalisation [Unknown]
